FAERS Safety Report 13454674 (Version 2)
Quarter: 2017Q2

REPORT INFORMATION
  Report Type: Spontaneous
  Country: GB (occurrence: GB)
  Receive Date: 20170418
  Receipt Date: 20170511
  Transmission Date: 20170830
  Serious: Yes (Other)
  Sender: FDA-Public Use
  Company Number: GB-INCYTE CORPORATION-2017IN002839

PATIENT
  Age: 48 Year
  Sex: Male

DRUGS (2)
  1. WARFARIN [Concomitant]
     Active Substance: WARFARIN
     Indication: PORTAL VEIN THROMBOSIS
     Dosage: UNK UNK, PRN
     Route: 048
     Dates: start: 2004
  2. JAKAVI [Suspect]
     Active Substance: RUXOLITINIB
     Indication: MYELOFIBROSIS
     Dosage: 15 MG, BID
     Route: 048
     Dates: start: 20141203

REACTIONS (5)
  - Platelet count decreased [Unknown]
  - Genital herpes simplex [Recovered/Resolved]
  - White blood cell count increased [Unknown]
  - Penile ulceration [Unknown]
  - Haematocrit increased [Unknown]

NARRATIVE: CASE EVENT DATE: 20141217
